FAERS Safety Report 16343705 (Version 2)
Quarter: 2019Q2

REPORT INFORMATION
  Report Type: Spontaneous
  Country: US (occurrence: US)
  Receive Date: 20190522
  Receipt Date: 20190619
  Transmission Date: 20190711
  Serious: No
  Sender: FDA-Public Use
  Company Number: US-PFIZER INC-2019214606

PATIENT
  Age: 25 Year
  Sex: Female

DRUGS (17)
  1. CLENPIQ [Concomitant]
     Active Substance: ANHYDROUS CITRIC ACID\MAGNESIUM OXIDE\SODIUM PICOSULFATE
     Dosage: UNK(CITRIC ACID 12G/MAGNESIUM OXIDE 3.5G/SODIUM PICOSULFATE 10MG)(CLENPIQ10-3.5-12 MG-GM -GM/160ML)
     Route: 048
  2. PREDNISONE. [Concomitant]
     Active Substance: PREDNISONE
     Dosage: 40 MG, 1X/DAY (2 TABLET WITH FOOD OR MILK ORALLY ONCE A DAY)
     Route: 048
  3. TRAZODONE HYDROCHLORIDE. [Concomitant]
     Active Substance: TRAZODONE HYDROCHLORIDE
     Dosage: 50 MG, AS NEEDED (1 TABLET AT BEDTIME AS NEEDED ORALLY ONCE A DAY)
     Route: 048
  4. ENTYVIO [Concomitant]
     Active Substance: VEDOLIZUMAB
     Dosage: 300 MG, UNK (SOLUTION RECONSTITUTED AS DIRECTED)
     Route: 042
  5. XELJANZ [Suspect]
     Active Substance: TOFACITINIB CITRATE
     Indication: COLITIS ULCERATIVE
     Dosage: 10 MG, 2X/DAY
     Route: 048
     Dates: start: 201812, end: 201905
  6. TYLENOL [Concomitant]
     Active Substance: ACETAMINOPHEN
     Dosage: 325 MG, AS NEEDED (1 TABLET AS NEEDED ORALLY EVERY 4 HRS)
     Route: 048
  7. LEVSIN/SL [Concomitant]
     Dosage: 0.125 MG, AS NEEDED(1 TABLET UNDER THE TONGUE AND ALLOW TO DISSOLVE AS)
     Route: 060
  8. BUDESONIDE. [Concomitant]
     Active Substance: BUDESONIDE
     Dosage: 1 DF, 2X/DAY (2 MG/ ACT FOAM 1 APPLICATION)
     Route: 054
  9. DULOXETINE HCL [Concomitant]
     Active Substance: DULOXETINE HYDROCHLORIDE
     Dosage: 60 MG, 1X/DAY
     Route: 048
  10. ADDERALL [Concomitant]
     Active Substance: AMPHETAMINE ASPARTATE\AMPHETAMINE SULFATE\DEXTROAMPHETAMINE SACCHARATE\DEXTROAMPHETAMINE SULFATE
     Dosage: 30 MG, 2X/DAY
     Route: 048
  11. HYOSCYAMINE SULFATE. [Concomitant]
     Active Substance: HYOSCYAMINE SULFATE
     Dosage: 0.125 MG, AS NEEDED (1 TABLET UNDER THE TONGUE AND ALLOW TO DISSOLVE AS NEEDED SUBLINGUAL EVERY 4HR)
     Route: 060
  12. WELLBUTRIN XL [Concomitant]
     Active Substance: BUPROPION HYDROCHLORIDE
     Dosage: 150 MG, 1X/DAY
     Route: 048
  13. ZOFRAN [Concomitant]
     Active Substance: ONDANSETRON HYDROCHLORIDE
     Dosage: 4 MG, AS NEEDED
     Route: 048
  14. BENTYL [Concomitant]
     Active Substance: DICYCLOMINE HYDROCHLORIDE
     Dosage: 20 MG, 4X/DAY
     Route: 048
  15. HYOSCYAMINE SULFATE. [Concomitant]
     Active Substance: HYOSCYAMINE SULFATE
     Dosage: 0.125 MG, AS NEEDED (1 TABLET AS NEEDED ORALLY EVERY 4 HRS)
     Route: 048
  16. GENERESS FE [Concomitant]
     Active Substance: ETHINYL ESTRADIOL\NORETHINDRONE
     Dosage: UNK UNK, 1X/DAY (ETHINYL ESTRADIOL 25 MCG/ NORETHINDRONE 0.8MG)
     Route: 048
  17. ONDANSETRON [Concomitant]
     Active Substance: ONDANSETRON
     Dosage: 8 MG, AS NEEDED (1 TABLET ON THE TONGUE AND ALLOW TO DISSOLVE ORALLY EVERY 8 HOUR AS NEEDED)

REACTIONS (6)
  - Skin ulcer [Recovering/Resolving]
  - Scar [Unknown]
  - Condition aggravated [Unknown]
  - Joint stiffness [Not Recovered/Not Resolved]
  - Nausea [Not Recovered/Not Resolved]
  - Skin lesion [Unknown]

NARRATIVE: CASE EVENT DATE: 201903
